FAERS Safety Report 20238988 (Version 2)
Quarter: 2022Q1

REPORT INFORMATION
  Report Type: Report from Study
  Country: CO (occurrence: CO)
  Receive Date: 20211228
  Receipt Date: 20220127
  Transmission Date: 20220423
  Serious: Yes (Other)
  Sender: FDA-Public Use
  Company Number: CO-JNJFOC-20211253225

PATIENT
  Age: 87 Year
  Sex: Male
  Weight: 58 kg

DRUGS (2)
  1. ZYTIGA [Suspect]
     Active Substance: ABIRATERONE ACETATE
     Indication: Prostate cancer metastatic
     Dosage: MOST RECENT ADMINISTRATION WAS ON DEC-2021.
     Route: 048
     Dates: start: 20190726, end: 202112
  2. PREDNISOLONE [Concomitant]
     Active Substance: PREDNISOLONE
     Indication: Product used for unknown indication
     Route: 065

REACTIONS (4)
  - Drug ineffective [Unknown]
  - Immobile [Not Recovered/Not Resolved]
  - Arthralgia [Not Recovered/Not Resolved]
  - Pain in extremity [Not Recovered/Not Resolved]

NARRATIVE: CASE EVENT DATE: 20211001
